FAERS Safety Report 9502496 (Version 1)
Quarter: 2013Q3

REPORT INFORMATION
  Report Type: Spontaneous
  Country: BR (occurrence: BR)
  Receive Date: 20130906
  Receipt Date: 20130906
  Transmission Date: 20140515
  Serious: Yes (Hospitalization)
  Sender: FDA-Public Use
  Company Number: BR-ASTRAZENECA-2013SE66554

PATIENT
  Age: 64 Year
  Sex: Male
  Weight: 69 kg

DRUGS (2)
  1. ATACAND [Suspect]
     Route: 048
     Dates: end: 201302
  2. BRILINTA [Suspect]
     Indication: CORONARY ARTERY OCCLUSION
     Route: 048
     Dates: start: 201302, end: 201302

REACTIONS (2)
  - Coronary artery occlusion [Recovered/Resolved]
  - Off label use [Recovered/Resolved]
